FAERS Safety Report 17668559 (Version 1)
Quarter: 2020Q2

REPORT INFORMATION
  Report Type: Spontaneous
  Country: US (occurrence: US)
  Receive Date: 20200415
  Receipt Date: 20200415
  Transmission Date: 20200713
  Serious: Yes (Death, Other)
  Sender: FDA-Public Use
  Company Number: US-ACTELION-A-CH2020-203940

PATIENT
  Age: 7 Month
  Sex: Female

DRUGS (2)
  1. TRACLEER [Suspect]
     Active Substance: BOSENTAN
     Indication: PULMONARY HYPERTENSION
     Route: 048
  2. SILDENAFIL. [Concomitant]
     Active Substance: SILDENAFIL

REACTIONS (11)
  - Respiratory failure [Fatal]
  - Disease progression [Unknown]
  - Lethargy [Unknown]
  - Diarrhoea [Unknown]
  - Irritability [Unknown]
  - Poor quality sleep [Not Recovered/Not Resolved]
  - Feeding intolerance [Unknown]
  - Pulmonary hypertension [Unknown]
  - Limb discomfort [Unknown]
  - Vomiting [Unknown]
  - Developmental delay [Unknown]
